FAERS Safety Report 7059789-8 (Version None)
Quarter: 2010Q4

REPORT INFORMATION
  Report Type: 
  Country: None (occurrence: None)
  Receive Date: 20101025
  Receipt Date: 20101015
  Transmission Date: 20110411
  Serious: Yes (Hospitalization)
  Sender: FDA-Public Use
  Company Number: US-PFIZER INC-2010123893

PATIENT
  Sex: Male
  Weight: 98.8 kg

DRUGS (4)
  1. PEGVISOMANT [Suspect]
     Indication: EWING'S SARCOMA
     Dosage: 10 MG, 1X/DAY
     Route: 058
     Dates: start: 20100922, end: 20100927
  2. CP-751,871 [Suspect]
     Indication: EWING'S SARCOMA
     Dosage: 2026 MG, DAY 1 AND 2 OF CYCLE 1, DAY 1 OF CYCLE 2 AND EVERY 3 WEEKS ONWARD
     Route: 042
     Dates: start: 20100908
  3. ADVIL [Concomitant]
     Indication: PAIN
     Dosage: 400 MG, AS NEEDED
     Route: 048
  4. OXYCODONE [Concomitant]
     Indication: BONE PAIN
     Dosage: 90-120 MG, EVERY 4 HOURS AS NEEDED
     Route: 048
     Dates: start: 20000911

REACTIONS (1)
  - HEADACHE [None]
